FAERS Safety Report 9349453 (Version 2)
Quarter: 2013Q3

REPORT INFORMATION
  Report Type: Report from Study
  Country: US (occurrence: US)
  Receive Date: 20130614
  Receipt Date: 20130704
  Transmission Date: 20140515
  Serious: Yes (Other)
  Sender: FDA-Public Use
  Company Number: US-ASTRAZENECA-2013SE42065

PATIENT
  Age: 71 Year
  Sex: Male
  Weight: 86.2 kg

DRUGS (1)
  1. SYMBICORT [Suspect]
     Indication: CHRONIC OBSTRUCTIVE PULMONARY DISEASE
     Dosage: 160/4.5, BID
     Route: 055
     Dates: start: 2011

REACTIONS (3)
  - Arterial occlusive disease [Unknown]
  - Ejection fraction decreased [Unknown]
  - Cardiac disorder [Unknown]
